FAERS Safety Report 13456291 (Version 1)
Quarter: 2017Q2

REPORT INFORMATION
  Report Type: Spontaneous
  Country: US (occurrence: US)
  Receive Date: 20170418
  Receipt Date: 20170418
  Transmission Date: 20170830
  Serious: Yes (Death)
  Sender: FDA-Public Use
  Company Number: US-VIFOR (INTERNATIONAL) INC.-VIT-2017-03982

PATIENT
  Age: 69 Year
  Sex: Male

DRUGS (6)
  1. DAILY VITE [Concomitant]
     Active Substance: VITAMINS
  2. VELTASSA [Suspect]
     Active Substance: PATIROMER
     Indication: HYPERKALAEMIA
     Route: 048
     Dates: start: 20161213, end: 20170406
  3. DILTIAZEM. [Concomitant]
     Active Substance: DILTIAZEM
  4. TAMSULOSIN [Concomitant]
     Active Substance: TAMSULOSIN
  5. SODIUM BICARBONATE. [Concomitant]
     Active Substance: SODIUM BICARBONATE
  6. HYDRALAZINE [Concomitant]
     Active Substance: HYDRALAZINE HYDROCHLORIDE

REACTIONS (1)
  - Accident [Fatal]

NARRATIVE: CASE EVENT DATE: 20170406
